FAERS Safety Report 24910522 (Version 1)
Quarter: 2025Q1

REPORT INFORMATION
  Report Type: Spontaneous
  Country: US (occurrence: US)
  Receive Date: 20250131
  Receipt Date: 20250131
  Transmission Date: 20250409
  Serious: No
  Sender: FRESENIUS KABI
  Company Number: US-FreseniusKabi-FK202501571

PATIENT
  Age: 71 Year
  Sex: Male

DRUGS (6)
  1. AZITHROMYCIN ANHYDROUS [Suspect]
     Active Substance: AZITHROMYCIN ANHYDROUS
     Indication: Product used for unknown indication
     Dates: end: 2024
  2. DUPIXENT [Suspect]
     Active Substance: DUPILUMAB
     Indication: Asthma
     Dosage: DOSAGE FORM: SOLUTION FOR INJECTION ?STRENGTH: 300MGL2ML?DELIVERED VIA PRE-FILED PEN?FREQUENCY: QOW
     Route: 058
     Dates: start: 20241010
  3. ALBUTEROL [Concomitant]
     Active Substance: ALBUTEROL
     Indication: Product used for unknown indication
  4. Arformoterol tartrate (Brovana) [Concomitant]
     Indication: Product used for unknown indication
  5. BUDESONIDE [Concomitant]
     Active Substance: BUDESONIDE
     Indication: Product used for unknown indication
  6. Revefenacin (Yupelri) [Concomitant]
     Indication: Product used for unknown indication

REACTIONS (1)
  - Diarrhoea [Unknown]
